FAERS Safety Report 16186626 (Version 1)
Quarter: 2019Q2

REPORT INFORMATION
  Report Type: Report from Study
  Country: FR (occurrence: FR)
  Receive Date: 20190411
  Receipt Date: 20190411
  Transmission Date: 20190711
  Serious: Yes (Hospitalization)
  Sender: FDA-Public Use
  Company Number: PHHY2019FR080956

PATIENT
  Age: 85 Year
  Sex: Female

DRUGS (1)
  1. ENTRESTO [Suspect]
     Active Substance: SACUBITRIL\VALSARTAN
     Indication: CARDIAC FAILURE
     Dosage: UNK
     Route: 065

REACTIONS (8)
  - Sleep disorder [Unknown]
  - Depressed mood [Unknown]
  - N-terminal prohormone brain natriuretic peptide increased [Unknown]
  - General physical health deterioration [Unknown]
  - Abdominal pain upper [Unknown]
  - Cardiac disorder [Unknown]
  - Arthralgia [Unknown]
  - Ejection fraction decreased [Unknown]
